FAERS Safety Report 5806219-7 (Version None)
Quarter: 2008Q3

REPORT INFORMATION
  Report Type: 
  Country: None (occurrence: None)
  Receive Date: 20080710
  Receipt Date: 20080702
  Transmission Date: 20090109
  Serious: Yes (Other)
  Sender: FDA-Public Use
  Company Number: GB-ROCHE-557554

PATIENT
  Sex: Male

DRUGS (1)
  1. ISOTRETINOIN [Suspect]
     Indication: ACNE
     Route: 048
     Dates: start: 20080218, end: 20080317

REACTIONS (8)
  - ARTHRALGIA [None]
  - CHAPPED LIPS [None]
  - CHEILITIS [None]
  - DEPRESSED MOOD [None]
  - DRY EYE [None]
  - DRY MOUTH [None]
  - ECZEMA [None]
  - MUSCULOSKELETAL DISCOMFORT [None]
